FAERS Safety Report 9791626 (Version 1)
Quarter: 2014Q1

REPORT INFORMATION
  Report Type: Report from Study
  Country: US (occurrence: US)
  Receive Date: 20140102
  Receipt Date: 20140102
  Transmission Date: 20141002
  Serious: Yes (Life-Threatening, Hospitalization, Other)
  Sender: FDA-Public Use
  Company Number: US-ROCHE-1324764

PATIENT
  Age: 70 Year
  Sex: Male

DRUGS (3)
  1. RITUXIMAB [Suspect]
     Indication: MANTLE CELL LYMPHOMA
     Dosage: ON DAY 1
     Route: 042
     Dates: start: 20130718, end: 20131119
  2. BORTEZOMIB [Suspect]
     Indication: MANTLE CELL LYMPHOMA
     Dosage: ON DAY 1,4, 8 AND 11
     Route: 058
     Dates: start: 20130718, end: 20131119
  3. BENDAMUSTINE [Suspect]
     Indication: MANTLE CELL LYMPHOMA
     Dosage: ON DAY 1 AND 2
     Route: 042
     Dates: start: 20130718, end: 20131120

REACTIONS (3)
  - Respiratory failure [Recovering/Resolving]
  - Left ventricular dysfunction [Recovering/Resolving]
  - Pulmonary oedema [Recovering/Resolving]
